FAERS Safety Report 8156712-X (Version None)
Quarter: 2012Q1

REPORT INFORMATION
  Report Type: 
  Country: None (occurrence: None)
  Receive Date: 20120210
  Receipt Date: 20120206
  Transmission Date: 20120608
  Serious: Yes (Hospitalization)
  Sender: FDA-Public Use
  Company Number: US-145276

PATIENT
  Sex: Female
  Weight: 139.6 kg

DRUGS (4)
  1. BENADRYL ( TO NOT CONTINUING) [Concomitant]
  2. TYLENOL ( TO NOT CONTINUING) [Concomitant]
  3. HYDROCORTISONE ( TO NOT CONTINUING) [Concomitant]
  4. WINRHO SDF [Suspect]
     Indication: AUTOIMMUNE THROMBOCYTOPENIA
     Dosage: (53.72 UG/KG TOTAL INTRAVENOUS (NOT OTHERWISE SPECIFIED)
     Route: 042
     Dates: start: 20120112, end: 20120112

REACTIONS (8)
  - HEADACHE [None]
  - PYREXIA [None]
  - CHILLS [None]
  - BLOOD LACTATE DEHYDROGENASE INCREASED [None]
  - NAUSEA [None]
  - HAEMOGLOBIN DECREASED [None]
  - LABORATORY TEST INTERFERENCE [None]
  - HAEMOLYSIS [None]
